FAERS Safety Report 7824394-X (Version None)
Quarter: 2011Q4

REPORT INFORMATION
  Report Type: 
  Country: None (occurrence: None)
  Receive Date: 20111019
  Receipt Date: 20111010
  Transmission Date: 20120403
  Serious: Yes (Death)
  Sender: FDA-Public Use
  Company Number: CN-BAYER-2011-096477

PATIENT
  Age: 72 Year
  Sex: Female

DRUGS (5)
  1. INTERFERON [Concomitant]
     Dosage: UNK
     Dates: start: 19930101
  2. THYMOSIN ALPHA 1 [Concomitant]
     Indication: IMMUNE ENHANCEMENT THERAPY
     Dosage: UNK
     Dates: start: 19930101
  3. NEXAVAR [Suspect]
     Indication: RENAL CANCER METASTATIC
     Dosage: 400 MG, BID
     Dates: start: 20080325
  4. INTERFERON [Concomitant]
     Indication: GAMMA INTERFERON THERAPY
     Dosage: UNK UNK, QD
     Route: 030
     Dates: start: 20080325
  5. NEXAVAR [Suspect]
     Indication: METASTASES TO LUNG

REACTIONS (20)
  - CHEST DISCOMFORT [None]
  - BLOOD PRESSURE INCREASED [None]
  - CHEST PAIN [None]
  - VENTRICULAR FIBRILLATION [None]
  - PAIN [None]
  - DYSPHONIA [None]
  - FATIGUE [None]
  - PERIPHERAL COLDNESS [None]
  - CARDIOPULMONARY FAILURE [None]
  - ASPHYXIA [None]
  - NAUSEA [None]
  - BLOOD PRESSURE DECREASED [None]
  - ACUTE MYOCARDIAL INFARCTION [None]
  - HEADACHE [None]
  - THIRST [None]
  - CYANOSIS [None]
  - DYSPNOEA [None]
  - VOMITING [None]
  - ARRHYTHMIA [None]
  - POOR QUALITY SLEEP [None]
